FAERS Safety Report 26186636 (Version 1)
Quarter: 2025Q4

REPORT INFORMATION
  Report Type: Spontaneous
  Country: CA (occurrence: CA)
  Receive Date: 20251222
  Receipt Date: 20251222
  Transmission Date: 20260117
  Serious: Yes (Life-Threatening, Hospitalization, Other)
  Sender: SOMERSET THERAPEUTICS, LLC
  Company Number: CA-MIT-25-75-CA-2025-SOM-LIT-00499

PATIENT

DRUGS (7)
  1. ROPIVACAINE HYDROCHLORIDE [Suspect]
     Active Substance: ROPIVACAINE HYDROCHLORIDE
     Indication: Device occlusion
     Dosage: INFUSION, 15 ML
     Route: 065
  2. ROPIVACAINE HYDROCHLORIDE [Suspect]
     Active Substance: ROPIVACAINE HYDROCHLORIDE
     Dosage: AT A RATE OF 5 ML/HOUR, INTERMITTENT BOLUSES OF 10 ML
     Route: 065
  3. FENTANYL [Concomitant]
     Active Substance: FENTANYL
     Dosage: 50 MICROGRAMS PER HOUR
     Route: 065
  4. FENTANYL [Concomitant]
     Active Substance: FENTANYL
     Dosage: 50 MICROGRAMS
     Route: 065
  5. PREGABALIN [Concomitant]
     Active Substance: PREGABALIN
     Route: 065
  6. PREGABALIN [Concomitant]
     Active Substance: PREGABALIN
  7. EPINEPHRINE [Concomitant]
     Active Substance: EPINEPHRINE
     Dosage: 5 MICROGRAM/ML (15 ML)
     Route: 065

REACTIONS (1)
  - Respiratory failure [Recovered/Resolved]
